FAERS Safety Report 11717460 (Version 3)
Quarter: 2016Q2

REPORT INFORMATION
  Report Type: Spontaneous
  Country: US (occurrence: US)
  Receive Date: 20151110
  Receipt Date: 20160427
  Transmission Date: 20160815
  Serious: No
  Sender: FDA-Public Use
  Company Number: US-ASTRAZENECA-2015SF05845

PATIENT
  Age: 1064 Month
  Sex: Female
  Weight: 52.2 kg

DRUGS (2)
  1. PULMICORT FLEXHALER [Suspect]
     Active Substance: BUDESONIDE
     Indication: ASTHMA
     Dosage: 180 MCG 1 PUFF IN THE MORNING AND 1 PUFF IN THE EVENING
     Route: 055
  2. PULMICORT FLEXHALER [Suspect]
     Active Substance: BUDESONIDE
     Indication: ASTHMA
     Dosage: 180 MCG 1 PUFF IN THE MORNING AND 1 PUFF IN THE EVENING
     Route: 055
     Dates: start: 20151009

REACTIONS (3)
  - Intentional product misuse [Unknown]
  - Asthma [Unknown]
  - Device failure [Unknown]

NARRATIVE: CASE EVENT DATE: 201509
